FAERS Safety Report 10268680 (Version 1)
Quarter: 2014Q2

REPORT INFORMATION
  Report Type: Spontaneous
  Country: US (occurrence: US)
  Receive Date: 20140630
  Receipt Date: 20140630
  Transmission Date: 20141212
  Serious: No
  Sender: FDA-Public Use
  Company Number: US-009507513-1406USA005622

PATIENT
  Sex: Male

DRUGS (2)
  1. MIRALAX [Suspect]
     Indication: CONSTIPATION
     Dosage: UNK, UNKNOWN
     Route: 048
     Dates: start: 20140518
  2. OXYCONTIN [Concomitant]
     Indication: ANALGESIC THERAPY
     Dosage: UNK, UNKNOWN

REACTIONS (2)
  - Expired product administered [Unknown]
  - Drug ineffective [Unknown]
